FAERS Safety Report 11951793 (Version 1)
Quarter: 2016Q1

REPORT INFORMATION
  Report Type: Spontaneous
  Country: CA (occurrence: CA)
  Receive Date: 20160126
  Receipt Date: 20160126
  Transmission Date: 20160526
  Serious: Yes (Hospitalization, Other)
  Sender: FDA-Public Use
  Company Number: CA-TEVA-628178ACC

PATIENT
  Sex: Female

DRUGS (5)
  1. PANTOLOC [Suspect]
     Active Substance: PANTOPRAZOLE SODIUM
     Indication: OROPHARYNGEAL PAIN
     Route: 065
  2. PROBACLAC [Concomitant]
  3. PANTOLOC [Suspect]
     Active Substance: PANTOPRAZOLE SODIUM
     Indication: COUGH
  4. CLINDAMYCIN [Suspect]
     Active Substance: CLINDAMYCIN\CLINDAMYCIN PHOSPHATE
     Indication: OROPHARYNGEAL PAIN
     Route: 065
  5. CLINDAMYCIN [Suspect]
     Active Substance: CLINDAMYCIN\CLINDAMYCIN PHOSPHATE
     Indication: COUGH

REACTIONS (4)
  - Clostridium difficile infection [Unknown]
  - Vitamin B12 decreased [Unknown]
  - Malaise [Unknown]
  - Weight decreased [Unknown]
